FAERS Safety Report 19755952 (Version 2)
Quarter: 2021Q3

REPORT INFORMATION
  Report Type: Spontaneous
  Country: ES (occurrence: ES)
  Receive Date: 20210827
  Receipt Date: 20210916
  Transmission Date: 20211014
  Serious: Yes (Hospitalization)
  Sender: FDA-Public Use
  Company Number: ES-ASTRAZENECA-2021A475620

PATIENT
  Age: 59 Year
  Sex: Female
  Weight: 80 kg

DRUGS (6)
  1. OMEPRAZOL [Suspect]
     Active Substance: OMEPRAZOLE
     Route: 048
     Dates: start: 2021, end: 2021
  2. MEPIVACAINA [Suspect]
     Active Substance: MEPIVACAINE HYDROCHLORIDE
     Route: 065
     Dates: start: 20210516, end: 20210516
  3. MODERNA COVID?19 VACCINE [Suspect]
     Active Substance: CX-024414
     Indication: COVID-19 IMMUNISATION
     Route: 030
     Dates: start: 20210507, end: 20210507
  4. LIDOCAINA [Suspect]
     Active Substance: LIDOCAINE
     Route: 065
     Dates: start: 20210516, end: 20210516
  5. IBUPROFENO [Suspect]
     Active Substance: IBUPROFEN
     Route: 065
     Dates: start: 2021, end: 2021
  6. ENALAPRIL + HIDROCLOROTIAZIDA [Suspect]
     Active Substance: ENALAPRIL MALEATE\HYDROCHLOROTHIAZIDE
     Indication: HYPERTENSION
     Route: 065
     Dates: start: 2020, end: 2021

REACTIONS (2)
  - Eosinophilia [Recovering/Resolving]
  - Rash [Recovering/Resolving]

NARRATIVE: CASE EVENT DATE: 20210516
